FAERS Safety Report 9758592 (Version 1)
Quarter: 2013Q4

REPORT INFORMATION
  Report Type: Spontaneous
  Country: US (occurrence: None)
  Receive Date: 20131216
  Receipt Date: 20131216
  Transmission Date: 20140711
  Serious: Yes (Other)
  Sender: FDA-Public Use
  Company Number: US-2012-11534

PATIENT
  Age: 77 Year
  Sex: Male

DRUGS (1)
  1. SAMSCA (TOLVAPTAN) TABLET [Suspect]
     Indication: PRODUCT USED FOR UNKNOWN INDICATION
     Dosage: 15 MG MILLIGRAM(S), UNK, ORAL

REACTIONS (6)
  - Rapid correction of hyponatraemia [None]
  - Hypoaesthesia [None]
  - Feeling abnormal [None]
  - Initial insomnia [None]
  - Social avoidant behaviour [None]
  - Treatment noncompliance [None]
